FAERS Safety Report 4890386-6 (Version None)
Quarter: 2005Q4

REPORT INFORMATION
  Report Type: 
  Country: None (occurrence: None)
  Receive Date: 20051216
  Receipt Date: 20050809
  Transmission Date: 20060501
  Serious: No
  Sender: FDA-Public Use
  Company Number: USA0506100601

PATIENT
  Age: 50 Year
  Sex: Female

DRUGS (11)
  1. CIALIS [Suspect]
     Indication: RAYNAUD'S PHENOMENON
     Dosage: 20 MG
     Dates: start: 20050509
  2. CIALIS [Suspect]
     Indication: SCLERODERMA
     Dosage: 20 MG
     Dates: start: 20050509
  3. ARAVA [Concomitant]
  4. ACETAMINOPHEN [Concomitant]
  5. NEXIUM [Concomitant]
  6. PRILOSEC [Concomitant]
  7. DEMADEX [Concomitant]
  8. TYLENOL ALLERGY SINUS [Concomitant]
  9. ALLEGRA-D /01367401/ [Concomitant]
  10. FLONASE [Concomitant]
  11. MORPHINE [Concomitant]

REACTIONS (8)
  - COCCYDYNIA [None]
  - DIZZINESS [None]
  - EPISTAXIS [None]
  - HEADACHE [None]
  - NAUSEA [None]
  - NECK PAIN [None]
  - OEDEMA PERIPHERAL [None]
  - VERTIGO [None]
